FAERS Safety Report 25941062 (Version 1)
Quarter: 2025Q4

REPORT INFORMATION
  Report Type: Spontaneous
  Country: US (occurrence: None)
  Receive Date: 20251018
  Receipt Date: 20251018
  Transmission Date: 20260117
  Serious: Yes (Other)
  Sender: FDA-CTU
  Company Number: None

PATIENT
  Age: 79 Year
  Sex: Female
  Weight: 72 kg

DRUGS (9)
  1. MYRBETRIQ [Suspect]
     Active Substance: MIRABEGRON
     Indication: Urinary incontinence
     Dosage: OTHER QUANTITY : 30 TABLET(S);?FREQUENCY : DAILY;?
     Route: 048
     Dates: start: 20250816, end: 20251013
  2. Advair 250/50 1X day [Concomitant]
  3. Hormone pellet [Concomitant]
  4. Gabapentin 100 mg 1xday [Concomitant]
  5. Famotid 40mg [Concomitant]
  6. ASCORBIC ACID [Concomitant]
     Active Substance: ASCORBIC ACID
  7. Vitamins B [Concomitant]
  8. D3,Flonase [Concomitant]
  9. PROBIOTICS NOS [Concomitant]
     Active Substance: PROBIOTICS NOS

REACTIONS (3)
  - Haemorrhage subcutaneous [None]
  - Blood pressure increased [None]
  - Patient dissatisfaction with treatment [None]

NARRATIVE: CASE EVENT DATE: 20250905
